FAERS Safety Report 18689768 (Version 1)
Quarter: 2020Q4

REPORT INFORMATION
  Report Type: Report from Study
  Country: US (occurrence: US)
  Receive Date: 20201231
  Receipt Date: 20201231
  Transmission Date: 20210114
  Serious: Yes (Hospitalization)
  Sender: FDA-Public Use
  Company Number: US-SEATTLE GENETICS-2020SGN05204

PATIENT
  Age: 41 Year
  Sex: Female

DRUGS (1)
  1. TUCATINIB [Suspect]
     Active Substance: TUCATINIB
     Indication: BREAST CANCER FEMALE
     Dosage: 150 MG, UNK
     Route: 048
     Dates: start: 20201120

REACTIONS (10)
  - Cardiac disorder [Unknown]
  - Diarrhoea [Recovered/Resolved]
  - Vomiting [Recovered/Resolved]
  - Renal disorder [Unknown]
  - Product physical issue [Unknown]
  - Nausea [Recovered/Resolved]
  - Unevaluable event [Unknown]
  - Abdominal pain [Recovered/Resolved]
  - Ureteral stent insertion [Unknown]
  - Blood creatinine increased [Unknown]

NARRATIVE: CASE EVENT DATE: 20201120
